FAERS Safety Report 8415410-5 (Version None)
Quarter: 2012Q2

REPORT INFORMATION
  Report Type: 
  Country: None (occurrence: None)
  Receive Date: 20120606
  Receipt Date: 20120529
  Transmission Date: 20120825
  Serious: Yes (Death, Hospitalization, Other)
  Sender: FDA-Public Use
  Company Number: US-BAYER-201011111NA

PATIENT
  Age: 64 Year
  Sex: Female
  Weight: 66.364 kg

DRUGS (12)
  1. MINOCYCLINE HCL [Concomitant]
  2. ATENOLOL [Concomitant]
  3. PRILOSEC [Concomitant]
  4. IMODIUM [Concomitant]
  5. POTASSIUM CHLORIDE [Concomitant]
  6. SORAFENIB (RAF KINASE INHIBITOR) [Suspect]
     Indication: BREAST CANCER METASTATIC
     Dosage: DURATION OF 13 DAYS REPORTED
     Route: 048
     Dates: start: 20091222, end: 20100104
  7. DILTIAZEM [Concomitant]
  8. PEPCID [Concomitant]
  9. LIPITOR [Concomitant]
  10. GEMZAR [Suspect]
     Indication: BREAST CANCER METASTATIC
     Dosage: DAYS 1 AND 8 OF 21 DAY CYCLE
     Route: 042
     Dates: start: 20091222, end: 20091222
  11. PAXIL [Concomitant]
  12. DIOVAN [Concomitant]

REACTIONS (10)
  - DIARRHOEA [None]
  - ASPARTATE AMINOTRANSFERASE INCREASED [None]
  - HAEMORRHAGE INTRACRANIAL [None]
  - RENAL FAILURE ACUTE [None]
  - RASH [None]
  - BLOOD BILIRUBIN INCREASED [None]
  - HYPOVOLAEMIA [None]
  - ANAEMIA [None]
  - DEEP VEIN THROMBOSIS [None]
  - ALANINE AMINOTRANSFERASE INCREASED [None]
